FAERS Safety Report 8887636 (Version 1)
Quarter: 2012Q4

REPORT INFORMATION
  Report Type: 
  Country: DE (occurrence: DE)
  Receive Date: 20121105
  Receipt Date: 20121105
  Transmission Date: 20130627
  Serious: Yes (Hospitalization)
  Sender: FDA-Public Use
  Company Number: DE-MYLANLABS-2012S1022069

PATIENT
  Age: 54 Year
  Sex: Female
  Weight: 80 kg

DRUGS (4)
  1. RISPERIDON [Suspect]
     Indication: BIPOLAR DISORDER
     Dosage: 1-0.5-0.5
     Route: 048
     Dates: start: 2008
  2. CLOZAPINE [Suspect]
     Indication: BIPOLAR DISORDER
     Dosage: 1.5-1-2
     Route: 049
     Dates: start: 2008
  3. L-THYROXIN [Suspect]
     Indication: BIPOLAR DISORDER
     Dosage: daily dose: 125 Mg millgram(s) every Days
     Route: 048
     Dates: start: 2008
  4. LITHIUM [Suspect]
     Indication: BIPOLAR DISORDER
     Dosage: 1-0-1
     Route: 048
     Dates: start: 2008

REACTIONS (1)
  - Procedural haemorrhage [Unknown]
